FAERS Safety Report 11176255 (Version 1)
Quarter: 2015Q2

REPORT INFORMATION
  Report Type: Report from Study
  Country: DE (occurrence: DE)
  Receive Date: 20150609
  Receipt Date: 20150609
  Transmission Date: 20150821
  Serious: Yes (Life-Threatening, Hospitalization, Disabling)
  Sender: FDA-Public Use
  Company Number: DE-BRISTOL-MYERS SQUIBB COMPANY-BMS-2015-035551

PATIENT
  Age: 56 Year
  Sex: Male
  Weight: 86 kg

DRUGS (5)
  1. ETOPOSIDE PHOSPHATE [Suspect]
     Active Substance: ETOPOSIDE PHOSPHATE
     Indication: ACUTE MYELOID LEUKAEMIA
     Dosage: 205 MG, QCYCLE
     Route: 042
     Dates: start: 20150226, end: 20150302
  2. MYLOTARG [Suspect]
     Active Substance: GEMTUZUMAB OZOGAMICIN
     Indication: ACUTE MYELOID LEUKAEMIA
     Dosage: 6.15 MG, QCYCLE
     Route: 042
     Dates: start: 20150226, end: 20150226
  3. ZAVEDOS [Suspect]
     Active Substance: IDARUBICIN
     Indication: ACUTE MYELOID LEUKAEMIA
     Dosage: 20.5 MG, QCYCLE
     Route: 042
  4. CYTARABINE. [Suspect]
     Active Substance: CYTARABINE
     Indication: ACUTE MYELOID LEUKAEMIA
     Dosage: 205 MG, QCYCLE
     Route: 042
     Dates: start: 20150226, end: 20150228
  5. VESANOID [Concomitant]
     Active Substance: TRETINOIN
     Indication: ACUTE MYELOID LEUKAEMIA
     Dosage: 90 MG, QCYCLE
     Route: 065
     Dates: start: 20150303, end: 20150319

REACTIONS (8)
  - Sepsis [Unknown]
  - Arterial repair [Unknown]
  - Intestinal perforation [Unknown]
  - Shock haemorrhagic [Unknown]
  - Acute kidney injury [Unknown]
  - Iliac artery perforation [Unknown]
  - Intra-abdominal haemorrhage [Not Recovered/Not Resolved]
  - Intestinal operation [Unknown]

NARRATIVE: CASE EVENT DATE: 20150406
